FAERS Safety Report 15464245 (Version 1)
Quarter: 2018Q4

REPORT INFORMATION
  Report Type: Spontaneous
  Country: SE (occurrence: SE)
  Receive Date: 20181004
  Receipt Date: 20181004
  Transmission Date: 20190204
  Serious: Yes (Hospitalization, Other)
  Sender: FDA-Public Use
  Company Number: SE-CASPER PHARMA LLC-2018CAS000162

PATIENT
  Age: 24 Year
  Sex: Female

DRUGS (1)
  1. PENICILLIN G BENZATHINE [Suspect]
     Active Substance: PENICILLIN G BENZATHINE
     Indication: TOOTH INFECTION
     Route: 065

REACTIONS (1)
  - Pseudomembranous colitis [Recovered/Resolved]
